FAERS Safety Report 10440129 (Version 1)
Quarter: 2014Q3

REPORT INFORMATION
  Report Type: Spontaneous
  Country: US (occurrence: US)
  Receive Date: 20140908
  Receipt Date: 20140908
  Transmission Date: 20150326
  Serious: Yes (Hospitalization)
  Sender: FDA-Public Use
  Company Number: US-BRISTOL-MYERS SQUIBB COMPANY-19422161

PATIENT
  Sex: Female

DRUGS (2)
  1. ABILIFY MAINTENA [Suspect]
     Active Substance: ARIPIPRAZOLE
     Dosage: 2 DOSES OF ABILIFY MAINTENA
  2. ABILIFY [Suspect]
     Active Substance: ARIPIPRAZOLE
     Dosage: DECREASED FROM 45MG TO 30MG

REACTIONS (3)
  - Suicidal ideation [Unknown]
  - Overdose [Unknown]
  - Anger [Unknown]
